FAERS Safety Report 7825140 (Version 3)
Quarter: 2013Q1

REPORT INFORMATION
  Report Type: Spontaneous
  Country: US (occurrence: US)
  Receive Date: 20110224
  Receipt Date: 20130219
  Transmission Date: 20140127
  Serious: Yes (Other)
  Sender: FDA-Public Use
  Company Number: US-JNJFOC-20110205228

PATIENT
  Age: 58 Year
  Sex: Female
  Weight: 56.7 kg

DRUGS (2)
  1. LEVAQUIN [Suspect]
     Indication: SINUSITIS
     Route: 048
     Dates: start: 20101016, end: 20101025
  2. MINOCYCLINE [Suspect]
     Indication: RHEUMATOID ARTHRITIS
     Route: 048

REACTIONS (8)
  - Nerve injury [Not Recovered/Not Resolved]
  - Adverse event [Recovered/Resolved]
  - Nerve compression [Not Recovered/Not Resolved]
  - Muscle injury [Recovered/Resolved]
  - Drug hypersensitivity [Not Recovered/Not Resolved]
  - Local swelling [Recovered/Resolved]
  - Hypoaesthesia [Not Recovered/Not Resolved]
  - Pain [Not Recovered/Not Resolved]
